FAERS Safety Report 5450313-X (Version None)
Quarter: 2007Q3

REPORT INFORMATION
  Report Type: 
  Country: None (occurrence: None)
  Receive Date: 20070912
  Receipt Date: 20070903
  Transmission Date: 20080115
  Serious: Yes (Hospitalization, Disabling)
  Sender: FDA-Public Use
  Company Number: FR-ASTRAZENECA-2007CG01252

PATIENT
  Age: 740 Month
  Sex: Male

DRUGS (2)
  1. NAROPEINE [Suspect]
     Indication: EPIDURAL ANAESTHESIA
     Route: 008
     Dates: start: 20040415, end: 20040419
  2. MORPHINE [Suspect]
     Indication: EPIDURAL ANAESTHESIA
     Route: 008
     Dates: start: 20040415, end: 20040419

REACTIONS (1)
  - ARACHNOIDITIS [None]
